FAERS Safety Report 7764762-8 (Version None)
Quarter: 2011Q3

REPORT INFORMATION
  Report Type: 
  Country: None (occurrence: None)
  Receive Date: 20110921
  Receipt Date: 20110921
  Transmission Date: 20111222
  Serious: Yes (Other)
  Sender: FDA-Public Use
  Company Number: None

PATIENT
  Sex: Female
  Weight: 43.091 kg

DRUGS (1)
  1. ZONEGRAN [Suspect]
     Indication: MIGRAINE
     Dosage: 100
     Route: 048
     Dates: start: 20110821, end: 20110822

REACTIONS (3)
  - MYOPIA [None]
  - VISUAL ACUITY REDUCED [None]
  - FLAT ANTERIOR CHAMBER OF EYE [None]
